FAERS Safety Report 18698238 (Version 1)
Quarter: 2021Q1

REPORT INFORMATION
  Report Type: Spontaneous
  Country: FR (occurrence: FR)
  Receive Date: 20210104
  Receipt Date: 20210104
  Transmission Date: 20210419
  Serious: Yes (Congenital Anomaly)
  Sender: FDA-Public Use
  Company Number: FR-US-PROVELL PHARMACEUTICALS LLC-E2B_90081813

PATIENT
  Sex: Male
  Weight: 3 kg

DRUGS (3)
  1. LEVOTHYROX 25 [Suspect]
     Active Substance: LEVOTHYROXINE SODIUM
     Indication: HYPOTHYROIDISM
     Route: 064
  2. LYSINE ACETYLSALICYLIC [Suspect]
     Active Substance: ASPIRIN DL-LYSINE
     Indication: PAIN
     Route: 064
  3. TARDYFERON B9                      /00023601/ [Concomitant]
     Active Substance: FERROUS SULFATE\FOLIC ACID
     Indication: PRODUCT USED FOR UNKNOWN INDICATION
     Route: 065
     Dates: start: 20170510, end: 20170810

REACTIONS (1)
  - Hiatus hernia [Unknown]

NARRATIVE: CASE EVENT DATE: 20180126
